FAERS Safety Report 14083462 (Version 1)
Quarter: 2017Q4

REPORT INFORMATION
  Report Type: Spontaneous
  Country: TR (occurrence: TR)
  Receive Date: 20171013
  Receipt Date: 20171013
  Transmission Date: 20180321
  Serious: Yes (Hospitalization)
  Sender: FDA-Public Use
  Company Number: TR-ROCHE-2002711

PATIENT
  Age: 76 Year
  Sex: Female
  Weight: 74 kg

DRUGS (2)
  1. COBIMETINIB. [Suspect]
     Active Substance: COBIMETINIB
     Indication: METASTATIC MALIGNANT MELANOMA
     Route: 048
     Dates: start: 20170320, end: 20170926
  2. VEMURAFENIB. [Suspect]
     Active Substance: VEMURAFENIB
     Indication: METASTATIC MALIGNANT MELANOMA
     Route: 048
     Dates: start: 20170320, end: 20170926

REACTIONS (2)
  - Prinzmetal angina [Unknown]
  - Prinzmetal angina [Not Recovered/Not Resolved]

NARRATIVE: CASE EVENT DATE: 20171003
